FAERS Safety Report 7200652-7 (Version None)
Quarter: 2010Q4

REPORT INFORMATION
  Report Type: 
  Country: None (occurrence: None)
  Receive Date: 20101215
  Receipt Date: 20101201
  Transmission Date: 20110411
  Serious: Yes (Disabling, Other)
  Sender: FDA-Public Use
  Company Number: ACO_20708_2010

PATIENT
  Age: 57 Year
  Sex: Male

DRUGS (14)
  1. AMPYRA [Suspect]
     Indication: PRODUCT USED FOR UNKNOWN INDICATION
     Dosage: 10 MG, Q 12 HRS, ORAL
     Route: 048
     Dates: start: 20101001, end: 20101101
  2. MELOXICAM [Concomitant]
  3. ISOSORBIDE (ISOSORBIDE) [Concomitant]
  4. GABAPENTIN [Concomitant]
  5. PRAMIPEXOLE (PRAMIPEXOLE) [Concomitant]
  6. PROVIGIL [Concomitant]
  7. METAXALONE (METAXALONE) [Concomitant]
  8. DOXAZOSIN MESYLATE [Concomitant]
  9. PRAVASTATIN [Concomitant]
  10. SPIRIVA [Concomitant]
  11. TEMAZEPAM [Concomitant]
  12. OXYBUTYNIN CHLORIDE [Concomitant]
  13. FUROSEMIDE [Concomitant]
  14. KLOR-CON (POTASSIUM CHLRORIDE) [Concomitant]

REACTIONS (3)
  - MONOPLEGIA [None]
  - PRURITUS [None]
  - RENAL HAEMORRHAGE [None]
